FAERS Safety Report 23615513 (Version 7)
Quarter: 2024Q2

REPORT INFORMATION
  Report Type: Spontaneous
  Country: SE (occurrence: SE)
  Receive Date: 20240311
  Receipt Date: 20240508
  Transmission Date: 20240715
  Serious: Yes (Hospitalization, Other)
  Sender: FDA-Public Use
  Company Number: SE-BRISTOL-MYERS SQUIBB COMPANY-2024-036478

PATIENT
  Age: 71 Year
  Sex: Male
  Weight: 76.7 kg

DRUGS (16)
  1. ELIQUIS [Suspect]
     Active Substance: APIXABAN
     Indication: Angina unstable
     Route: 048
     Dates: start: 20211219, end: 20240214
  2. ELIQUIS [Suspect]
     Active Substance: APIXABAN
     Indication: Thrombosis prophylaxis
     Route: 048
     Dates: start: 20240103, end: 20240215
  3. ELIQUIS [Suspect]
     Active Substance: APIXABAN
     Route: 048
     Dates: start: 20240219, end: 20240227
  4. ASPIRIN [Suspect]
     Active Substance: ASPIRIN
     Indication: Cardiovascular event prophylaxis
     Dosage: ACETYLSALICYLIC ACID AT A DOSE OF 75 MG X 4 TABLETS
     Route: 048
     Dates: start: 20231221, end: 202402
  5. ASPIRIN [Suspect]
     Active Substance: ASPIRIN
     Route: 048
     Dates: start: 20231224, end: 202402
  6. VALACYCLOVIR HYDROCHLORIDE [Concomitant]
     Active Substance: VALACYCLOVIR HYDROCHLORIDE
     Indication: Antiviral prophylaxis
     Route: 048
     Dates: start: 20211203
  7. ZOPICLONE [Concomitant]
     Active Substance: ZOPICLONE
     Indication: Insomnia
     Route: 048
     Dates: start: 20220121
  8. OMEPRAZOLE [Concomitant]
     Active Substance: DONEPEZIL HYDROCHLORIDE\OMEPRAZOLE\OMEPRAZOLE MAGNESIUM
     Indication: Gastritis
     Route: 048
     Dates: start: 20220329
  9. FELODIPINE [Concomitant]
     Active Substance: FELODIPINE
     Indication: Hypertension
     Route: 048
     Dates: start: 20230822
  10. OXYCODONE [Concomitant]
     Active Substance: OXYCODONE\OXYCODONE HYDROCHLORIDE
     Indication: Pain in extremity
     Dosage: 5 MG, AS NEEDED
     Route: 048
     Dates: start: 20231130
  11. METOPROLOL [Concomitant]
     Active Substance: METOPROLOL
     Indication: Angina unstable
     Route: 048
     Dates: start: 20240103
  12. METOPROLOL [Concomitant]
     Active Substance: METOPROLOL
     Indication: Prophylaxis
  13. ALFUZOSIN [Concomitant]
     Active Substance: ALFUZOSIN
     Indication: Bladder diverticulum
     Route: 048
  14. ATORVASTATIN [Concomitant]
     Active Substance: ATORVASTATIN
     Indication: Hyperlipidaemia
     Route: 048
  15. INSULIN NOS [Concomitant]
     Active Substance: INSULIN NOS
     Indication: Type 2 diabetes mellitus
     Dosage: 12
     Route: 058
  16. NOVORAPID [Concomitant]
     Active Substance: INSULIN ASPART
     Indication: Type 2 diabetes mellitus
     Dosage: 4 PRN
     Route: 058

REACTIONS (7)
  - Haemorrhage urinary tract [Recovered/Resolved]
  - Urinary tract infection pseudomonal [Unknown]
  - Anaemia [Recovered/Resolved]
  - Blood creatinine increased [Unknown]
  - Urinary retention [Unknown]
  - Night sweats [Unknown]
  - Pyrexia [Recovered/Resolved]

NARRATIVE: CASE EVENT DATE: 20231228
